FAERS Safety Report 8928048 (Version 1)
Quarter: 2012Q4

REPORT INFORMATION
  Report Type: Spontaneous
  Country: US (occurrence: None)
  Receive Date: 20121120
  Receipt Date: 20121120
  Transmission Date: 20130627
  Serious: Yes (Other)
  Sender: FDA-Public Use
  Company Number: ACO_32964_2012

PATIENT
  Age: 49 Year
  Sex: Female
  Weight: 88.9 kg

DRUGS (13)
  1. AMPYRA (DALFAMPRIDINE) TABLET, 10MG [Suspect]
  2. TOVIAZ [Concomitant]
  3. MULTIVITAMIN [Concomitant]
  4. VITAMIN D [Concomitant]
  5. GLUCOSAMINE + CHONDROITIN WITH MSM [Concomitant]
  6. NUVIGIL [Concomitant]
  7. CYMBALTA [Concomitant]
  8. TYLENOL [Concomitant]
  9. PERI-COLACE [Concomitant]
  10. ALL OTHER THERAPEUTIC PRODUCTS [Concomitant]
  11. VIVELLE-DOT [Concomitant]
  12. AVONEX [Concomitant]
  13. FLUTICASONE [Concomitant]

REACTIONS (3)
  - Hepatic enzyme increased [None]
  - Back injury [None]
  - Road traffic accident [None]
